FAERS Safety Report 8473547-9 (Version None)
Quarter: 2012Q2

REPORT INFORMATION
  Report Type: 
  Country: None (occurrence: None)
  Receive Date: 20120628
  Receipt Date: 20120621
  Transmission Date: 20120825
  Serious: Yes (Death, Hospitalization, Other)
  Sender: FDA-Public Use
  Company Number: US-BAYER-2012-025632

PATIENT
  Age: 53 Year
  Sex: Male
  Weight: 115 kg

DRUGS (23)
  1. TRASYLOL [Suspect]
     Indication: CORONARY ARTERY BYPASS
     Dosage: 1 ML TEST DOSE, 200 ML PUMP PRIME, FOLLOWED BY CONITINUOUS INFUSION OF 50 ML/HR
     Route: 042
     Dates: start: 20060712, end: 20060712
  2. THROMBIN [Concomitant]
     Dosage: 10000 U, UNK
     Route: 042
     Dates: start: 20060712, end: 20060712
  3. LIDOCAINE [Concomitant]
     Dosage: UNK
     Dates: start: 20060712, end: 20060712
  4. ETOMIDATE [Concomitant]
     Dosage: UNK
     Dates: start: 20060712, end: 20060712
  5. NITROGLYCERIN [Concomitant]
     Dosage: UNK
     Dates: start: 20060712, end: 20060712
  6. COREG [Concomitant]
  7. CAPTOPRIL [Concomitant]
  8. LASIX [Concomitant]
  9. RED BLOOD CELLS [Concomitant]
     Dosage: 3 U, UNK
     Route: 042
     Dates: start: 20060712, end: 20060712
  10. MANNITOL [Concomitant]
     Dosage: UNK
     Dates: start: 20060712, end: 20060712
  11. FORANE [Concomitant]
     Dosage: UNK
     Dates: start: 20060712, end: 20060712
  12. PAVULON [Concomitant]
     Dosage: UNK
     Dates: start: 20060712, end: 20060712
  13. NPH INSULIN [Concomitant]
  14. HEPARIN [Concomitant]
     Dosage: UNK
     Dates: start: 20060712, end: 20060712
  15. DOBUTAMINE HCL [Concomitant]
     Dosage: UNK
     Dates: start: 20060712, end: 20060712
  16. CARDIOPLEGIA [Concomitant]
     Dosage: UNK
     Dates: start: 20060712, end: 20060712
  17. PHENYLEPHRINE HCL [Concomitant]
     Dosage: UNK
     Dates: start: 20060712, end: 20060712
  18. FLONASE [Concomitant]
  19. ANCEF [Concomitant]
     Dosage: 2 G, UNK
     Dates: start: 20060712, end: 20060712
  20. ASPIRIN [Concomitant]
  21. LIPITOR [Concomitant]
  22. PREVACID [Concomitant]
  23. VERSED [Concomitant]
     Dosage: UNK
     Dates: start: 20060712, end: 20060712

REACTIONS (8)
  - CELLULITIS [None]
  - ENCEPHALOPATHY [None]
  - RENAL FAILURE [None]
  - CARDIAC FAILURE CONGESTIVE [None]
  - DYSPNOEA [None]
  - DEATH [None]
  - DEPRESSION [None]
  - RESPIRATORY DISTRESS [None]
